FAERS Safety Report 17404300 (Version 1)
Quarter: 2020Q1

REPORT INFORMATION
  Report Type: Spontaneous
  Country: US (occurrence: US)
  Receive Date: 20200211
  Receipt Date: 20200211
  Transmission Date: 20200409
  Serious: No
  Sender: FDA-Public Use
  Company Number: US-BAUSCH-BL-2020-002280

PATIENT
  Age: 85 Year
  Sex: Female

DRUGS (1)
  1. ARESTIN [Suspect]
     Active Substance: MINOCYCLINE HYDROCHLORIDE
     Indication: GINGIVAL DISORDER
     Route: 004
     Dates: start: 20200120, end: 20200120

REACTIONS (1)
  - Tongue coated [Unknown]

NARRATIVE: CASE EVENT DATE: 20200122
